FAERS Safety Report 7280426-1 (Version None)
Quarter: 2011Q1

REPORT INFORMATION
  Report Type: 
  Country: None (occurrence: None)
  Receive Date: 20110208
  Receipt Date: 20110202
  Transmission Date: 20110831
  Serious: Yes (Hospitalization)
  Sender: FDA-Public Use
  Company Number: FR-SANOFI-AVENTIS-2011SA007026

PATIENT
  Age: 78 Year
  Sex: Female

DRUGS (10)
  1. ASPIRIN [Concomitant]
     Route: 065
  2. ZANIDIP [Suspect]
     Route: 048
     Dates: end: 20110112
  3. TANAKAN [Suspect]
     Route: 048
     Dates: end: 20110112
  4. CACIT D3 [Concomitant]
     Route: 065
  5. ALDALIX [Suspect]
     Route: 048
     Dates: end: 20110112
  6. DIFFU K [Suspect]
     Route: 048
     Dates: end: 20110112
  7. SIFROL [Concomitant]
     Route: 065
  8. STILNOX [Suspect]
     Indication: INSOMNIA
     Route: 048
     Dates: end: 20110112
  9. PARIET [Suspect]
     Route: 048
     Dates: end: 20110112
  10. OLMETEC [Suspect]
     Route: 048
     Dates: end: 20110112

REACTIONS (4)
  - HYPONATRAEMIA [None]
  - VOMITING [None]
  - MALAISE [None]
  - NAUSEA [None]
